FAERS Safety Report 24554386 (Version 1)
Quarter: 2024Q4

REPORT INFORMATION
  Report Type: Spontaneous
  Country: US (occurrence: US)
  Receive Date: 20241028
  Receipt Date: 20241028
  Transmission Date: 20250115
  Serious: Yes (Other)
  Sender: ACCORD
  Company Number: US-MLMSERVICE-20241010-PI223159-00128-1

PATIENT
  Age: 6 Decade
  Sex: Male

DRUGS (12)
  1. ETOPOSIDE [Suspect]
     Active Substance: ETOPOSIDE
     Indication: Plasmablastic lymphoma
     Dosage: DOSE-ADJUSTED, 6 CYCLES
  2. METHOTREXATE [Suspect]
     Active Substance: METHOTREXATE
     Indication: Plasmablastic lymphoma
     Dosage: 2 TREATMENTS
     Route: 037
  3. CYCLOPHOSPHAMIDE [Suspect]
     Active Substance: CYCLOPHOSPHAMIDE
     Indication: Plasmablastic lymphoma
     Dosage: DOSE-ADJUSTED, 6 CYCLES
  4. DOXORUBICIN [Suspect]
     Active Substance: DOXORUBICIN
     Indication: Plasmablastic lymphoma
     Dosage: DOSE-ADJUSTED, 6 CYCLES
  5. PREDNISONE [Suspect]
     Active Substance: PREDNISONE
     Indication: Plasmablastic lymphoma
     Dosage: DOSE-ADJUSTED, 6 CYCLES
  6. VINCRISTINE [Suspect]
     Active Substance: VINCRISTINE
     Indication: Plasmablastic lymphoma
     Dosage: DOSE-ADJUSTED, 6 CYCLES
  7. METHOTREXATE [Suspect]
     Active Substance: METHOTREXATE
     Indication: Nasal sinus cancer
     Dosage: 2 TREATMENTS
     Route: 037
  8. CYCLOPHOSPHAMIDE [Suspect]
     Active Substance: CYCLOPHOSPHAMIDE
     Indication: Nasal sinus cancer
     Dosage: DOSE-ADJUSTED, 6 CYCLES
  9. DOXORUBICIN [Suspect]
     Active Substance: DOXORUBICIN
     Indication: Nasal sinus cancer
     Dosage: DOSE-ADJUSTED, 6 CYCLES
  10. ETOPOSIDE [Suspect]
     Active Substance: ETOPOSIDE
     Indication: Nasal sinus cancer
     Dosage: DOSE-ADJUSTED, 6 CYCLES
  11. PREDNISONE [Suspect]
     Active Substance: PREDNISONE
     Indication: Nasal sinus cancer
     Dosage: DOSE-ADJUSTED, 6 CYCLES
  12. VINCRISTINE [Suspect]
     Active Substance: VINCRISTINE
     Indication: Nasal sinus cancer
     Dosage: DOSE-ADJUSTED, 6 CYCLES

REACTIONS (2)
  - Neuropathy peripheral [Unknown]
  - Off label use [Unknown]
